FAERS Safety Report 8811174 (Version 1)
Quarter: 2012Q4

REPORT INFORMATION
  Report Type: Spontaneous
  Country: US (occurrence: None)
  Receive Date: 20120925
  Receipt Date: 20120925
  Transmission Date: 20130627
  Serious: Yes (Other)
  Sender: FDA-Public Use
  Company Number: None

PATIENT
  Age: 77 Year
  Sex: Male
  Weight: 79.38 kg

DRUGS (1)
  1. KETAMINE HYDROCHLORIDE [Suspect]
     Indication: DISLOCATED ELBOW
     Dates: start: 20120902

REACTIONS (1)
  - Visual impairment [None]
